FAERS Safety Report 23406779 (Version 1)
Quarter: 2024Q1

REPORT INFORMATION
  Report Type: Spontaneous
  Country: US (occurrence: None)
  Receive Date: 20240115
  Receipt Date: 20240115
  Transmission Date: 20240410
  Serious: Yes (Death)
  Sender: FDA-Public Use
  Company Number: None

PATIENT
  Age: 91 Year
  Sex: Female

DRUGS (7)
  1. TAGRISSO [Suspect]
     Active Substance: OSIMERTINIB
     Indication: Non-small cell lung cancer
     Dosage: 40MG ORAL??TK 11/2 TS PO D
     Route: 048
     Dates: start: 20200120
  2. ASPIRIN EC LOW DOSE [Concomitant]
  3. AMLODIPINE BESYLATE [Concomitant]
     Active Substance: AMLODIPINE BESYLATE
  4. ARTIFICIAL TEARS OPHTH SOLN [Concomitant]
  5. CARVEDILOL [Concomitant]
     Active Substance: CARVEDILOL
  6. SIMVASTATIN [Concomitant]
     Active Substance: SIMVASTATIN
  7. VIT D SOFTGELS [Concomitant]

REACTIONS (1)
  - Death [None]
